FAERS Safety Report 4677530-0 (Version None)
Quarter: 2005Q2

REPORT INFORMATION
  Report Type: 
  Country: None (occurrence: None)
  Receive Date: 20050531
  Receipt Date: 20041206
  Transmission Date: 20051028
  Serious: Yes (Death)
  Sender: FDA-Public Use
  Company Number: US-AMGEN-KDL102071

PATIENT
  Age: 95 Year
  Sex: Female
  Weight: 57.7 kg

DRUGS (1)
  1. PROCRIT [Suspect]
     Indication: RENAL FAILURE CHRONIC
     Route: 058
     Dates: start: 20041202

REACTIONS (5)
  - ASTHENIA [None]
  - DEATH [None]
  - DYSPNOEA [None]
  - HEART RATE INCREASED [None]
  - PAIN [None]
